FAERS Safety Report 5064148-3 (Version None)
Quarter: 2006Q3

REPORT INFORMATION
  Report Type: 
  Country: None (occurrence: None)
  Receive Date: 20060728
  Receipt Date: 20050916
  Transmission Date: 20061208
  Serious: No
  Sender: FDA-Public Use
  Company Number: US-GLAXOSMITHKLINE-A0574533A

PATIENT
  Age: 1 Month
  Sex: Female

DRUGS (2)
  1. ZANTAC [Suspect]
     Dosage: .8ML TWICE PER DAY
     Route: 048
     Dates: start: 20050915
  2. NO CONCURRENT MEDICATION [Concomitant]

REACTIONS (1)
  - DRUG INEFFECTIVE [None]
